FAERS Safety Report 6166115-5 (Version None)
Quarter: 2009Q2

REPORT INFORMATION
  Report Type: 
  Country: None (occurrence: None)
  Receive Date: 20090422
  Receipt Date: 20090422
  Transmission Date: 20091009
  Serious: Yes (Hospitalization)
  Sender: FDA-Public Use
  Company Number: None

PATIENT
  Age: 66 Year
  Sex: Male

DRUGS (1)
  1. NULYTELY [Suspect]
     Indication: COLONOSCOPY
     Dates: start: 20090312

REACTIONS (3)
  - ATRIAL FIBRILLATION [None]
  - COLD SWEAT [None]
  - LOSS OF CONSCIOUSNESS [None]
